FAERS Safety Report 17252160 (Version 1)
Quarter: 2020Q1

REPORT INFORMATION
  Report Type: Spontaneous
  Country: US (occurrence: US)
  Receive Date: 20200108
  Receipt Date: 20200108
  Transmission Date: 20200409
  Serious: Yes (Hospitalization)
  Sender: FDA-Public Use
  Company Number: None

PATIENT
  Age: 74 Year
  Sex: Female

DRUGS (6)
  1. IBRANCE [Suspect]
     Active Substance: PALBOCICLIB
     Indication: BREAST CANCER
     Route: 048
     Dates: start: 20191205
  2. FUROSEMIDE. [Concomitant]
     Active Substance: FUROSEMIDE
  3. PANTOPRAZOLE [Concomitant]
     Active Substance: PANTOPRAZOLE
  4. OXYCODONE [Concomitant]
     Active Substance: OXYCODONE
  5. BISACODYL. [Concomitant]
     Active Substance: BISACODYL
  6. ANUCORT-HC [Concomitant]
     Active Substance: HYDROCORTISONE ACETATE

REACTIONS (2)
  - White blood cell count abnormal [None]
  - Therapy cessation [None]

NARRATIVE: CASE EVENT DATE: 20200107
